FAERS Safety Report 6513065-8 (Version None)
Quarter: 2009Q4

REPORT INFORMATION
  Report Type: 
  Country: None (occurrence: None)
  Receive Date: 20091222
  Receipt Date: 20091222
  Transmission Date: 20100525
  Serious: No
  Sender: FDA-Public Use
  Company Number: None

PATIENT
  Age: 44 Year
  Sex: Female
  Weight: 56.6996 kg

DRUGS (4)
  1. VERSED [Suspect]
     Indication: COLONOSCOPY
     Dosage: IV
     Route: 042
     Dates: start: 20040702, end: 20040702
  2. VERSED [Suspect]
     Indication: LAPAROSCOPY
     Dosage: IV
     Route: 042
     Dates: start: 20040702, end: 20040702
  3. VERSED [Suspect]
     Indication: COLONOSCOPY
     Dosage: IV
     Route: 042
     Dates: start: 20041116, end: 20041116
  4. VERSED [Suspect]
     Indication: LAPAROSCOPY
     Dosage: IV
     Route: 042
     Dates: start: 20041116, end: 20041116

REACTIONS (5)
  - ABNORMAL BEHAVIOUR [None]
  - AMNESIA [None]
  - POST-TRAUMATIC STRESS DISORDER [None]
  - PRODUCT QUALITY ISSUE [None]
  - SUICIDAL IDEATION [None]
